FAERS Safety Report 7520726-0 (Version None)
Quarter: 2011Q2

REPORT INFORMATION
  Report Type: 
  Country: None (occurrence: None)
  Receive Date: 20110603
  Receipt Date: 20101202
  Transmission Date: 20111010
  Serious: Yes (Life-Threatening, Hospitalization)
  Sender: FDA-Public Use
  Company Number: JP-BAYER-200911958BYL

PATIENT
  Age: 69 Year
  Sex: Male
  Weight: 59 kg

DRUGS (9)
  1. NEXAVAR [Suspect]
     Indication: RENAL CELL CARCINOMA STAGE IV
     Route: 048
     Dates: start: 20090106, end: 20090116
  2. NEXAVAR [Suspect]
     Dosage: 200 MG, QD
     Route: 048
     Dates: start: 20090227, end: 20090422
  3. TAGAMET [Concomitant]
     Dosage: AFTER BREAKFAST AND SUPPER
     Route: 048
  4. AMLODIPINE [Concomitant]
     Dosage: 5 MG (DAILY DOSE), , ORAL
     Route: 048
     Dates: start: 20090313
  5. NEXAVAR [Suspect]
     Dosage: 200 MG, QD
     Route: 048
     Dates: start: 20090507, end: 20090603
  6. DOXAZOSIN MESYLATE [Concomitant]
     Dosage: 6 MG (DAILY DOSE), , ORAL
     Route: 048
     Dates: start: 20090326
  7. NEXAVAR [Suspect]
     Dosage: 400 MG, QD
     Route: 048
     Dates: start: 20090423, end: 20090506
  8. ALLOPURINOL [Concomitant]
     Dosage: 100 MG (DAILY DOSE), , ORAL
     Route: 048
     Dates: end: 20090113
  9. NEXAVAR [Suspect]
     Dosage: 400 MG, QD
     Route: 048
     Dates: start: 20090604, end: 20090610

REACTIONS (7)
  - PANCREATITIS ACUTE [None]
  - BLOOD AMYLASE INCREASED [None]
  - RASH [None]
  - HYPERTENSION [None]
  - ABDOMINAL PAIN [None]
  - CHEST PAIN [None]
  - LIPASE INCREASED [None]
